FAERS Safety Report 6941729-0 (Version None)
Quarter: 2010Q3

REPORT INFORMATION
  Report Type: 
  Country: None (occurrence: None)
  Receive Date: 20100826
  Receipt Date: 20100817
  Transmission Date: 20110219
  Serious: Yes (Hospitalization, Other)
  Sender: FDA-Public Use
  Company Number: US-BIOGENIDEC-2006BI001834

PATIENT
  Sex: Female

DRUGS (8)
  1. AVONEX [Suspect]
     Indication: MULTIPLE SCLEROSIS
     Route: 030
     Dates: start: 20030801, end: 20100801
  2. AVONEX [Suspect]
     Route: 030
     Dates: start: 20030801, end: 20100801
  3. AVONEX [Suspect]
     Route: 030
     Dates: start: 20010101, end: 20030701
  4. NAPRELAN [Concomitant]
     Indication: PRODUCT USED FOR UNKNOWN INDICATION
  5. REQUIP [Concomitant]
     Indication: PRODUCT USED FOR UNKNOWN INDICATION
  6. PROVIGIL [Concomitant]
     Indication: PRODUCT USED FOR UNKNOWN INDICATION
  7. ACETAMINOPHEN [Concomitant]
     Indication: PRODUCT USED FOR UNKNOWN INDICATION
  8. CHEMOTHERAPY (NOS) [Concomitant]
     Indication: BREAST CANCER

REACTIONS (3)
  - BREAST CANCER [None]
  - CARDIAC FAILURE CONGESTIVE [None]
  - NEOPLASM MALIGNANT [None]
